FAERS Safety Report 4610515-9 (Version None)
Quarter: 2005Q2

REPORT INFORMATION
  Report Type: 
  Country: None (occurrence: None)
  Receive Date: 20050301
  Receipt Date: 20050125
  Transmission Date: 20051028
  Serious: No
  Sender: FDA-Public Use
  Company Number: WAES 0501USA03883

PATIENT
  Age: 63 Year
  Sex: Male

DRUGS (4)
  1. ZETIA [Suspect]
     Indication: BLOOD CHOLESTEROL INCREASED
     Dosage: 10 MG/ PO
     Route: 048
     Dates: start: 20040815, end: 20050118
  2. CELEBREX [Concomitant]
  3. THERAPY UNSPECIFIED [Concomitant]
  4. DILTIAZEM HYDROCHLORIDE [Concomitant]

REACTIONS (1)
  - FLATULENCE [None]
